FAERS Safety Report 16047205 (Version 3)
Quarter: 2019Q3

REPORT INFORMATION
  Report Type: Report from Study
  Country: AU (occurrence: AU)
  Receive Date: 20190307
  Receipt Date: 20190904
  Transmission Date: 20191004
  Serious: Yes (Death, Hospitalization, Other)
  Sender: FDA-Public Use
  Company Number: PHHY2019AU049954

PATIENT
  Age: 62 Year
  Sex: Female

DRUGS (4)
  1. ABL001 [Suspect]
     Active Substance: ASCIMINIB
     Indication: CHRONIC MYELOID LEUKAEMIA
     Route: 065
  2. NILOTINIB [Suspect]
     Active Substance: NILOTINIB
     Indication: CHRONIC MYELOID LEUKAEMIA
     Dosage: 400 MG, BID
     Route: 065
     Dates: start: 201812
  3. DASATINIB. [Suspect]
     Active Substance: DASATINIB
     Indication: CHRONIC MYELOID LEUKAEMIA
     Dosage: 100 MG, UNK
     Route: 065
     Dates: end: 201808
  4. IMATINIB. [Suspect]
     Active Substance: IMATINIB MESYLATE
     Indication: CHRONIC MYELOID LEUKAEMIA
     Dosage: UNK
     Route: 065

REACTIONS (6)
  - Dyspnoea [Fatal]
  - Chronic myeloid leukaemia recurrent [Unknown]
  - Pleural effusion [Not Recovered/Not Resolved]
  - Respiratory muscle weakness [Fatal]
  - Neuromyopathy [Fatal]
  - Drug ineffective [Unknown]
